FAERS Safety Report 15678364 (Version 2)
Quarter: 2018Q4

REPORT INFORMATION
  Report Type: Spontaneous
  Country: US (occurrence: US)
  Receive Date: 20181201
  Receipt Date: 20181207
  Transmission Date: 20190205
  Serious: No
  Sender: FDA-Public Use
  Company Number: US-PFIZER INC-2018492526

PATIENT
  Age: 88 Year
  Sex: Female

DRUGS (3)
  1. DILANTIN [Suspect]
     Active Substance: PHENYTOIN
     Indication: SEIZURE
     Dosage: 100 MG, 1X/DAY
  2. DILANTIN [Interacting]
     Active Substance: PHENYTOIN
     Dosage: 100 MG, 2X/DAY
  3. IRON [Interacting]
     Active Substance: IRON
     Dosage: UNK, 2X/DAY

REACTIONS (6)
  - Drug level decreased [Not Recovered/Not Resolved]
  - Asthenia [Unknown]
  - Presyncope [Unknown]
  - Drug interaction [Unknown]
  - Eye disorder [Unknown]
  - Cyanopsia [Unknown]

NARRATIVE: CASE EVENT DATE: 2016
